FAERS Safety Report 12355333 (Version 1)
Quarter: 2016Q2

REPORT INFORMATION
  Report Type: Spontaneous
  Country: US (occurrence: US)
  Receive Date: 20160511
  Receipt Date: 20160511
  Transmission Date: 20160815
  Serious: Yes (Other)
  Sender: FDA-Public Use
  Company Number: US-BEH-2016062247

PATIENT
  Sex: Female

DRUGS (1)
  1. HIZENTRA [Suspect]
     Active Substance: HUMAN IMMUNOGLOBULIN G
     Indication: PRODUCT USED FOR UNKNOWN INDICATION

REACTIONS (11)
  - Infection [Unknown]
  - Migraine [Unknown]
  - Administration site reaction [Unknown]
  - Carbon dioxide decreased [Unknown]
  - Fatigue [Unknown]
  - Weight increased [Unknown]
  - Vomiting [Unknown]
  - Blood potassium decreased [Unknown]
  - Blood sodium decreased [Unknown]
  - Meningitis aseptic [Unknown]
  - Diarrhoea [Unknown]
